FAERS Safety Report 21246751 (Version 4)
Quarter: 2022Q3

REPORT INFORMATION
  Report Type: Report from Study
  Country: DK (occurrence: None)
  Receive Date: 20220824
  Receipt Date: 20220914
  Transmission Date: 20221026
  Serious: Yes (Hospitalization)
  Sender: FDA-Public Use
  Company Number: DK-ROCHE-3165219

PATIENT
  Age: 55 Year
  Sex: Female
  Weight: 75.2 kg

DRUGS (26)
  1. ATEZOLIZUMAB [Suspect]
     Active Substance: ATEZOLIZUMAB
     Indication: Malignant neoplasm of unknown primary site
     Dosage: ON 04/AUG/2022, MOST RECENT DOSE OF ATEZOLIZUMAB (1200 MG) WAS ADMINISTERED PRIOR TO SAE/AESI ONSET.
     Route: 041
     Dates: start: 20220804
  2. CARBOPLATIN [Suspect]
     Active Substance: CARBOPLATIN
     Indication: Malignant neoplasm of unknown primary site
     Dosage: ON 04/JUL/2022, MOST RECENT DOSE OF CARBOPLATIN(504 MG) WAS ADMINISTERED PRIOR TO SAE/AESI ONSET.
     Route: 042
     Dates: start: 20220520
  3. CARBOPLATIN [Suspect]
     Active Substance: CARBOPLATIN
     Dosage: ON 04/AUG/2022, MOST RECENT DOSE OF CARBOPLATIN (504 MG) WAS ADMINISTERED PRIOR TO SAE/AESI ONSET.
     Route: 042
     Dates: start: 20220804
  4. PACLITAXEL [Suspect]
     Active Substance: PACLITAXEL
     Indication: Malignant neoplasm of unknown primary site
     Dosage: ON 04/JUL/2022, MOST RECENT DOSE OF PACLITAXEL (315 MG) WAS ADMINISTERED PRIOR TO SAE/AESI ONSET.
     Route: 042
     Dates: start: 20220520
  5. PACLITAXEL [Suspect]
     Active Substance: PACLITAXEL
     Dosage: ON 04/AUG/2022, MOST RECENT DOSE OF PACLITAXEL (323.76 MG) WAS ADMINISTERED PRIOR TO SAE/AESI ONSET.
     Route: 042
     Dates: start: 20220804
  6. DOMPERIDONE [Concomitant]
     Active Substance: DOMPERIDONE
     Route: 048
     Dates: start: 20220519, end: 20220522
  7. CLEMASTINE [Concomitant]
     Active Substance: CLEMASTINE
     Route: 042
     Dates: start: 20220520, end: 20220520
  8. CLEMASTINE [Concomitant]
     Active Substance: CLEMASTINE
     Route: 042
     Dates: start: 20220704, end: 20220704
  9. SOLU-MEDROL [Concomitant]
     Active Substance: METHYLPREDNISOLONE SODIUM SUCCINATE
     Route: 042
     Dates: start: 20220520, end: 20220520
  10. SOLU-MEDROL [Concomitant]
     Active Substance: METHYLPREDNISOLONE SODIUM SUCCINATE
     Route: 042
     Dates: start: 20220613, end: 20220613
  11. SOLU-MEDROL [Concomitant]
     Active Substance: METHYLPREDNISOLONE SODIUM SUCCINATE
     Route: 042
     Dates: start: 20220704, end: 20220704
  12. SOLU-MEDROL [Concomitant]
     Active Substance: METHYLPREDNISOLONE SODIUM SUCCINATE
     Route: 042
     Dates: start: 20220804, end: 20220804
  13. PALONOSETRON [Concomitant]
     Active Substance: PALONOSETRON
     Route: 048
     Dates: start: 20220520, end: 20220520
  14. PALONOSETRON [Concomitant]
     Active Substance: PALONOSETRON
     Route: 048
     Dates: start: 20220613, end: 20220613
  15. PALONOSETRON [Concomitant]
     Active Substance: PALONOSETRON
     Route: 048
     Dates: start: 20220704, end: 20220704
  16. PALONOSETRON [Concomitant]
     Active Substance: PALONOSETRON
     Route: 048
     Dates: start: 20220804, end: 20220804
  17. PREDNISOLONE [Concomitant]
     Active Substance: PREDNISOLONE
     Route: 048
     Dates: start: 20220521, end: 20220522
  18. PREDNISOLONE [Concomitant]
     Active Substance: PREDNISOLONE
     Route: 048
     Dates: start: 20220705, end: 20220706
  19. CLEMASTINE [Concomitant]
     Active Substance: CLEMASTINE
     Route: 042
     Dates: start: 20220613, end: 20220613
  20. CLEMASTINE [Concomitant]
     Active Substance: CLEMASTINE
     Route: 042
     Dates: start: 20220704, end: 20220704
  21. CLEMASTINE [Concomitant]
     Active Substance: CLEMASTINE
     Route: 042
     Dates: start: 20220804, end: 20220804
  22. POLYETHYLENE GLYCOLS [Concomitant]
     Active Substance: POLYETHYLENE GLYCOLS
     Dosage: DOSE: 1 UNIT
     Route: 048
     Dates: start: 20220728
  23. THIAMINE [Concomitant]
     Active Substance: THIAMINE
     Route: 042
     Dates: start: 20220820, end: 20220823
  24. THIAMINE [Concomitant]
     Active Substance: THIAMINE
     Route: 048
     Dates: start: 20220823
  25. ACETAMINOPHEN [Concomitant]
     Active Substance: ACETAMINOPHEN
     Indication: Axillary pain
     Route: 048
     Dates: start: 20220405
  26. ACETAMINOPHEN [Concomitant]
     Active Substance: ACETAMINOPHEN
     Indication: Headache

REACTIONS (1)
  - Immune-mediated encephalitis [Recovered/Resolved]

NARRATIVE: CASE EVENT DATE: 20220804
